FAERS Safety Report 19583112 (Version 2)
Quarter: 2021Q3

REPORT INFORMATION
  Report Type: Spontaneous
  Country: GB (occurrence: GB)
  Receive Date: 20210719
  Receipt Date: 20210804
  Transmission Date: 20211014
  Serious: Yes (Other)
  Sender: FDA-Public Use
  Company Number: GB-BAXTER-2021BAX020618

PATIENT
  Age: 36 Year
  Sex: Female
  Weight: 146.96 kg

DRUGS (3)
  1. PENICILLIN G [Concomitant]
     Active Substance: PENICILLIN G
     Indication: ILL-DEFINED DISORDER
     Dosage: X2
     Route: 065
     Dates: start: 20210624, end: 20210624
  2. MIDAZOLAM 5MG/ML SOLUTION FOR INJECTION/INFUSION [Suspect]
     Active Substance: MIDAZOLAM
     Indication: SEDATIVE THERAPY
     Dosage: 6 MG
     Route: 051
     Dates: start: 20210624, end: 20210624
  3. DEXAMETHASONE. [Concomitant]
     Active Substance: DEXAMETHASONE
     Indication: ILL-DEFINED DISORDER
     Dosage: X4 2MG
     Route: 065
     Dates: start: 20210624

REACTIONS (10)
  - Head discomfort [Recovered/Resolved]
  - Chills [Recovered/Resolved]
  - Fatigue [Recovered/Resolved]
  - Disturbance in attention [Recovered/Resolved]
  - Disorientation [Recovered/Resolved]
  - Sensory loss [Unknown]
  - Dizziness [Recovered/Resolved]
  - Medication error [Unknown]
  - Syncope [Recovered/Resolved]
  - Coordination abnormal [Recovered/Resolved with Sequelae]

NARRATIVE: CASE EVENT DATE: 20210624
